FAERS Safety Report 6183860-6 (Version None)
Quarter: 2009Q2

REPORT INFORMATION
  Report Type: 
  Country: None (occurrence: None)
  Receive Date: 20090508
  Receipt Date: 20090427
  Transmission Date: 20091009
  Serious: Yes (Hospitalization, Other)
  Sender: FDA-Public Use
  Company Number: US-PFIZER INC-2009205268

PATIENT
  Age: 6 Year
  Sex: Female
  Weight: 28.4 kg

DRUGS (1)
  1. GLIPIZIDE [Suspect]
     Dosage: 10 MG, SINGLE
     Route: 048

REACTIONS (3)
  - ACCIDENTAL EXPOSURE [None]
  - ACCIDENTAL POISONING [None]
  - HYPOGLYCAEMIA [None]
